FAERS Safety Report 12471405 (Version 1)
Quarter: 2016Q2

REPORT INFORMATION
  Report Type: Spontaneous
  Country: JP (occurrence: JP)
  Receive Date: 20160616
  Receipt Date: 20160616
  Transmission Date: 20160815
  Serious: Yes (Other)
  Sender: FDA-Public Use
  Company Number: JP-GLAXOSMITHKLINE-JP2016JPN083045

PATIENT

DRUGS (3)
  1. DEPAKENE [Concomitant]
     Active Substance: VALPROIC ACID
  2. ALEVIATIN [Concomitant]
     Active Substance: PHENYTOIN SODIUM
  3. LAMICTAL [Suspect]
     Active Substance: LAMOTRIGINE
     Indication: EPILEPSY
     Dosage: 400 MG, 1D
     Route: 048

REACTIONS (3)
  - Abasia [Not Recovered/Not Resolved]
  - Drug level increased [Unknown]
  - Poverty of speech [Not Recovered/Not Resolved]
